FAERS Safety Report 13170218 (Version 3)
Quarter: 2017Q2

REPORT INFORMATION
  Report Type: Spontaneous
  Country: US (occurrence: US)
  Receive Date: 20170131
  Receipt Date: 20170412
  Transmission Date: 20170830
  Serious: Yes (Hospitalization, Other)
  Sender: FDA-Public Use
  Company Number: US-ASTRAZENECA-2017SE08554

PATIENT
  Age: 66 Year
  Sex: Female
  Weight: 72.6 kg

DRUGS (7)
  1. FLONASE [Concomitant]
     Active Substance: FLUTICASONE PROPIONATE
     Indication: CHRONIC SINUSITIS
     Dosage: TWO TIMES A DAY
     Route: 045
  2. PULMICORT FLEXHALER [Suspect]
     Active Substance: BUDESONIDE
     Indication: ASTHMA
     Route: 055
  3. PULMICORT FLEXHALER [Suspect]
     Active Substance: BUDESONIDE
     Indication: ASTHMA
     Dosage: 180 MCG, ONE PUFF TWICE DAILY
     Route: 055
     Dates: start: 20170112
  4. XARELTO [Concomitant]
     Active Substance: RIVAROXABAN
     Indication: ANTICOAGULANT THERAPY
     Route: 048
     Dates: start: 201604
  5. SINGULAIR [Concomitant]
     Active Substance: MONTELUKAST SODIUM
     Indication: MULTIPLE ALLERGIES
     Route: 048
  6. ASPIRIN. [Concomitant]
     Active Substance: ASPIRIN
     Route: 048
  7. AZELASTINE [Concomitant]
     Active Substance: AZELASTINE
     Indication: CHRONIC SINUSITIS
     Dosage: TWO TIMES A DAY
     Route: 045

REACTIONS (10)
  - Staphylococcal infection [Not Recovered/Not Resolved]
  - Soft tissue sarcoma [Not Recovered/Not Resolved]
  - Visual impairment [Recovered/Resolved]
  - Chronic sinusitis [Recovering/Resolving]
  - Device malfunction [Recovering/Resolving]
  - Thrombosis [Not Recovered/Not Resolved]
  - Malaise [Not Recovered/Not Resolved]
  - Hypersensitivity [Not Recovered/Not Resolved]
  - Nasal congestion [Not Recovered/Not Resolved]
  - Drug dose omission [Unknown]

NARRATIVE: CASE EVENT DATE: 2014
